FAERS Safety Report 6326448-6 (Version None)
Quarter: 2009Q3

REPORT INFORMATION
  Report Type: 
  Country: None (occurrence: None)
  Receive Date: 20090825
  Receipt Date: 20070919
  Transmission Date: 20100115
  Serious: Yes (Other)
  Sender: FDA-Public Use
  Company Number: US-ASTRAZENECA-2006UW23655

PATIENT
  Age: 14660 Day
  Sex: Female
  Weight: 98 kg

DRUGS (10)
  1. SEROQUEL [Suspect]
     Indication: DEPRESSION
     Dosage: STRENGTH- 100 MG, 200 MG, 400 MG  DOSE- 100 MG-400 MG DAILY
     Route: 048
     Dates: start: 20041019
  2. SEROQUEL [Suspect]
     Route: 048
     Dates: start: 20050101
  3. PREDNISONE TAB [Concomitant]
     Indication: SARCOIDOSIS
     Dates: start: 19930101
  4. ELAVIL [Concomitant]
     Indication: SLEEP DISORDER
     Dosage: STRENGTH 50 MG, 100 MG  DOSE 50 MG-100 MG DAILY
     Dates: start: 20020715
  5. CYMBALTA [Concomitant]
     Dosage: STRENGTH 20 MG, 30 MG, 60 MG
     Dates: start: 20060630
  6. REMERON [Concomitant]
     Dosage: STRENGTH 15 MG, 30 MG  DOSE 15 MG- 30 MG
     Dates: start: 20050601
  7. WELLBUTRIN XL [Concomitant]
     Route: 048
     Dates: start: 20041019
  8. ENALAPRIL MALEATE [Concomitant]
     Indication: BLOOD PRESSURE
  9. ZOCOR [Concomitant]
     Indication: BLOOD CHOLESTEROL
     Dates: start: 20071018
  10. NEURONTIN [Concomitant]
     Indication: PAIN IN EXTREMITY
     Dosage: STRENGTH  100 MG, 300 MG  DOSE 300 MG-900 MG
     Dates: start: 20061019

REACTIONS (5)
  - DIABETES MELLITUS [None]
  - DIABETES MELLITUS INADEQUATE CONTROL [None]
  - DIABETIC NEPHROPATHY [None]
  - DIABETIC NEUROPATHY [None]
  - WEIGHT INCREASED [None]
